FAERS Safety Report 22242418 (Version 1)
Quarter: 2023Q2

REPORT INFORMATION
  Report Type: Spontaneous
  Country: US (occurrence: US)
  Receive Date: 20230422
  Receipt Date: 20230422
  Transmission Date: 20230722
  Serious: Yes (Death, Other)
  Sender: FDA-Public Use
  Company Number: US-drreddys-LIT/USA/23/0164019

PATIENT
  Age: 59 Year
  Sex: Male

DRUGS (7)
  1. DECITABINE [Suspect]
     Active Substance: DECITABINE
     Indication: Myelofibrosis
     Dosage: DECITABINE WITH VENETOCLAX
  2. DECITABINE [Suspect]
     Active Substance: DECITABINE
     Dosage: MONOTHERAPY
  3. VENETOCLAX [Suspect]
     Active Substance: VENETOCLAX
     Indication: Myelofibrosis
  4. ENASIDENIB [Suspect]
     Active Substance: ENASIDENIB
     Indication: Myelofibrosis
  5. CYTARABINE [Concomitant]
     Active Substance: CYTARABINE
     Indication: Myelofibrosis
  6. CLADRIBINE [Concomitant]
     Active Substance: CLADRIBINE
     Indication: Myelofibrosis
  7. MITOXANTRONE [Concomitant]
     Active Substance: MITOXANTRONE HYDROCHLORIDE
     Indication: Myelofibrosis

REACTIONS (4)
  - Death [Fatal]
  - Therapy non-responder [Unknown]
  - Product use in unapproved indication [Unknown]
  - Therapeutic response unexpected [Unknown]
